FAERS Safety Report 7630145-4 (Version None)
Quarter: 2011Q3

REPORT INFORMATION
  Report Type: 
  Country: None (occurrence: None)
  Receive Date: 20110722
  Receipt Date: 20110712
  Transmission Date: 20111222
  Serious: Yes (Hospitalization, Congenital Anomaly, Other)
  Sender: FDA-Public Use
  Company Number: US-PFIZER INC-2011158554

PATIENT
  Sex: Female
  Weight: 2.45 kg

DRUGS (3)
  1. EFFEXOR XR [Suspect]
     Dosage: 75 MG, 1X/DAY
     Route: 064
  2. EFFEXOR XR [Suspect]
     Dosage: 150 MG, 1X/DAY
     Route: 064
  3. EFFEXOR XR [Suspect]
     Dosage: 37.5 MG, 1X/DAY
     Route: 064

REACTIONS (8)
  - ATRIAL SEPTAL DEFECT [None]
  - PATENT DUCTUS ARTERIOSUS [None]
  - TRICUSPID VALVE INCOMPETENCE [None]
  - VENTRICULAR SEPTAL DEFECT [None]
  - FALLOT'S TETRALOGY [None]
  - AORTIC VALVE INCOMPETENCE [None]
  - MITRAL VALVE INCOMPETENCE [None]
  - MATERNAL EXPOSURE DURING PREGNANCY [None]
